FAERS Safety Report 6444409-3 (Version None)
Quarter: 2009Q4

REPORT INFORMATION
  Report Type: 
  Country: None (occurrence: None)
  Receive Date: 20091118
  Receipt Date: 20091106
  Transmission Date: 20100525
  Serious: Yes (Hospitalization)
  Sender: FDA-Public Use
  Company Number: US-ELI_LILLY_AND_COMPANY-US200911003927

PATIENT
  Sex: Female

DRUGS (5)
  1. FORTEO [Suspect]
     Dosage: UNK, UNK
     Dates: start: 20090801
  2. VITAMIN D [Concomitant]
     Dosage: 1000 U, 2/D
  3. VITAMIN D [Concomitant]
     Dosage: 50000 U, MONTHLY (1/M)
  4. CALCIUM [Concomitant]
     Dosage: 1200 MG, 2/D
  5. COUMADIN [Concomitant]
     Dates: start: 20090101

REACTIONS (3)
  - ATRIAL FIBRILLATION [None]
  - OEDEMA PERIPHERAL [None]
  - TRANSIENT ISCHAEMIC ATTACK [None]
